FAERS Safety Report 8366010-7 (Version None)
Quarter: 2012Q2

REPORT INFORMATION
  Report Type: 
  Country: None (occurrence: None)
  Receive Date: 20120517
  Receipt Date: 20120510
  Transmission Date: 20120825
  Serious: No
  Sender: FDA-Public Use
  Company Number: US-PFIZER INC-US-WYE-H15322210

PATIENT
  Sex: Male
  Weight: 102 kg

DRUGS (4)
  1. EFFEXOR [Suspect]
     Indication: DEPRESSION
     Dosage: UNK
  2. PRISTIQ [Suspect]
     Indication: DEPRESSION
     Dosage: UNK, 2X/DAY
     Route: 048
     Dates: start: 20100501, end: 20100101
  3. EFFEXOR XR [Suspect]
     Indication: DEPRESSION
     Dosage: 75 MG, 2X/DAY
     Route: 048
     Dates: start: 20100601
  4. VENLAFAXINE HCL [Suspect]
     Indication: DEPRESSION
     Dosage: UNK

REACTIONS (5)
  - DRUG INEFFECTIVE [None]
  - ASTHENIA [None]
  - DEPRESSION [None]
  - DYSPNOEA [None]
  - MALAISE [None]
